FAERS Safety Report 22086754 (Version 2)
Quarter: 2023Q1

REPORT INFORMATION
  Report Type: Spontaneous
  Country: US (occurrence: US)
  Receive Date: 20230312
  Receipt Date: 20230317
  Transmission Date: 20230418
  Serious: No
  Sender: FDA-Public Use
  Company Number: US-002147023-NVSC2023US053894

PATIENT
  Sex: Female

DRUGS (2)
  1. XIIDRA [Suspect]
     Active Substance: LIFITEGRAST
     Indication: Product used for unknown indication
     Dosage: 1 DRP, BID (IN EACH EYE, IN THE AM AND PM)
     Route: 047
     Dates: start: 20230222, end: 20230305
  2. AMOXICILLIN [Concomitant]
     Active Substance: AMOXICILLIN
     Indication: Product used for unknown indication
     Dosage: UNK
     Route: 065

REACTIONS (7)
  - Rash [Unknown]
  - Dry eye [Unknown]
  - Pharyngeal swelling [Unknown]
  - Madarosis [Unknown]
  - Ocular hyperaemia [Unknown]
  - Eye pain [Unknown]
  - Headache [Unknown]
